FAERS Safety Report 15678989 (Version 2)
Quarter: 2019Q1

REPORT INFORMATION
  Report Type: Spontaneous
  Country: US (occurrence: US)
  Receive Date: 20181202
  Receipt Date: 20190204
  Transmission Date: 20190417
  Serious: Yes (Hospitalization)
  Sender: FDA-Public Use
  Company Number: US-BRISTOL-MYERS SQUIBB COMPANY-BMS-2018-111640

PATIENT
  Age: 84 Year
  Sex: Female
  Weight: 77.11 kg

DRUGS (1)
  1. ELIQUIS [Suspect]
     Active Substance: APIXABAN
     Indication: CEREBROVASCULAR ACCIDENT PROPHYLAXIS
     Dosage: 5 MG, BID
     Route: 065
     Dates: start: 20171226

REACTIONS (5)
  - Chronic obstructive pulmonary disease [Unknown]
  - Fall [Unknown]
  - Dyspnoea [Unknown]
  - Pain in extremity [Unknown]
  - Head injury [Unknown]

NARRATIVE: CASE EVENT DATE: 2018
